FAERS Safety Report 7557266-9 (Version None)
Quarter: 2011Q2

REPORT INFORMATION
  Report Type: 
  Country: None (occurrence: None)
  Receive Date: 20110620
  Receipt Date: 20070105
  Transmission Date: 20111010
  Serious: Yes (Hospitalization, Other)
  Sender: FDA-Public Use
  Company Number: PHEH2006US11966

PATIENT
  Sex: Male

DRUGS (17)
  1. ZANTAC [Concomitant]
     Dosage: UNKNOWN
     Dates: start: 19930101
  2. TRILEPTAL [Suspect]
     Indication: RESTLESS LEGS SYNDROME
     Dates: start: 20040204
  3. NALTREXONE HYDROCHLORIDE [Suspect]
     Indication: DRUG DEPENDENCE
     Dosage: 380 MG, QMO
     Route: 030
     Dates: start: 20040129
  4. ATIVAN [Concomitant]
     Dosage: 1 MG, UNK
     Dates: start: 20060119, end: 20060119
  5. AMBIEN [Concomitant]
     Dosage: UNKNOWN
     Dates: start: 20050831
  6. OXYCONTIN [Concomitant]
     Dosage: UNKNOWN
     Dates: start: 20051201, end: 20051201
  7. ALLEGRA [Concomitant]
     Dosage: UNKNOWN
     Dates: start: 20040413
  8. CALCIUM CARBONATE [Concomitant]
     Dosage: UNKNOWN
     Dates: start: 20060103, end: 20060103
  9. NEO-SYNEPHRINE [Concomitant]
     Dates: start: 20060101, end: 20060101
  10. ATIVAN [Concomitant]
     Dosage: UNKNOWN
     Dates: start: 20051108
  11. AVELOX [Concomitant]
     Dosage: UNK, UNK
     Dates: start: 20060104, end: 20060111
  12. SODIUM BICARBONATE [Concomitant]
     Dosage: UNKNOWN
     Dates: start: 20060103, end: 20060103
  13. INSULIN [Concomitant]
     Dosage: UNKNOWN
     Dates: start: 20060103, end: 20060103
  14. DOPAMINE HCL [Concomitant]
     Dosage: UNKNOWN
     Dates: start: 20060103, end: 20060104
  15. K-DUR [Concomitant]
     Dosage: UNKNOWN
     Dates: start: 20060108, end: 20060111
  16. NARCAN [Concomitant]
     Dosage: UNKNOWN
     Dates: start: 20051230, end: 20051230
  17. ASPIRIN [Concomitant]
     Dosage: UNKNOWN
     Dates: start: 20060101, end: 20060101

REACTIONS (15)
  - BLOOD GLUCOSE INCREASED [None]
  - BLOOD GASES ABNORMAL [None]
  - CYANOSIS [None]
  - RESPIRATORY RATE INCREASED [None]
  - GRAND MAL CONVULSION [None]
  - OVERDOSE [None]
  - GENERALISED ERYTHEMA [None]
  - PRURITUS [None]
  - PNEUMONIA ASPIRATION [None]
  - APNOEIC ATTACK [None]
  - TACHYCARDIA [None]
  - RESPIRATORY DISTRESS [None]
  - HYPOTENSION [None]
  - URTICARIA [None]
  - RESPIRATORY FAILURE [None]
